FAERS Safety Report 12157790 (Version 1)
Quarter: 2016Q1

REPORT INFORMATION
  Report Type: Spontaneous
  Country: US (occurrence: US)
  Receive Date: 20160308
  Receipt Date: 20160308
  Transmission Date: 20160526
  Serious: No
  Sender: FDA-Public Use
  Company Number: US-JNJFOC-20141102945

PATIENT
  Age: 62 Year
  Sex: Male
  Weight: 59.9 kg

DRUGS (17)
  1. OMEPRAZOLE. [Concomitant]
     Active Substance: OMEPRAZOLE
  2. DILTIAZEM [Concomitant]
     Active Substance: DILTIAZEM
  3. ALLOPURINOL. [Concomitant]
     Active Substance: ALLOPURINOL
  4. ISONIAZIDE [Concomitant]
     Active Substance: ISONIAZID
  5. LOMOTIL [Concomitant]
     Active Substance: ATROPINE SULFATE\DIPHENOXYLATE HYDROCHLORIDE
  6. SIMETHICONE (DIMETHICONE) [Concomitant]
     Active Substance: DIMETHICONE
  7. PYRIDOXINE [Concomitant]
     Active Substance: PYRIDOXINE
  8. METOPROLOL. [Concomitant]
     Active Substance: METOPROLOL
  9. IMBRUVICA [Suspect]
     Active Substance: IBRUTINIB
     Indication: CHRONIC LYMPHOCYTIC LEUKAEMIA
     Route: 048
     Dates: start: 20141008, end: 201410
  10. IMBRUVICA [Suspect]
     Active Substance: IBRUTINIB
     Indication: CHRONIC LYMPHOCYTIC LEUKAEMIA
     Route: 048
     Dates: start: 201410, end: 2014
  11. ALDACTONE [Concomitant]
     Active Substance: SPIRONOLACTONE
  12. BARACLUDE [Concomitant]
     Active Substance: ENTECAVIR
  13. LIDODERM [Concomitant]
     Active Substance: LIDOCAINE
  14. MORPHINE [Concomitant]
     Active Substance: MORPHINE
  15. ACYCLOVIR. [Concomitant]
     Active Substance: ACYCLOVIR
  16. FUROSEMIDE. [Concomitant]
     Active Substance: FUROSEMIDE
  17. SENOKOT [Concomitant]
     Active Substance: SENNOSIDES

REACTIONS (3)
  - Diarrhoea [Unknown]
  - Nausea [Recovering/Resolving]
  - Retching [Recovering/Resolving]

NARRATIVE: CASE EVENT DATE: 2014
